FAERS Safety Report 5920538-5 (Version None)
Quarter: 2008Q4

REPORT INFORMATION
  Report Type: 
  Country: None (occurrence: None)
  Receive Date: 20081015
  Receipt Date: 20081015
  Transmission Date: 20090506
  Serious: Yes (Hospitalization)
  Sender: FDA-Public Use
  Company Number: None

PATIENT
  Sex: Female

DRUGS (4)
  1. MIRCETTE [Suspect]
     Indication: MENORRHAGIA
     Dosage: ONCE A DAY PO
     Route: 048
  2. PROMETHAZINE [Concomitant]
  3. FEXOFENADINE [Concomitant]
  4. METHYLPREDNISOLONE 16MG TAB [Concomitant]

REACTIONS (1)
  - PULMONARY EMBOLISM [None]
